FAERS Safety Report 9532671 (Version 2)
Quarter: 2013Q4

REPORT INFORMATION
  Report Type: Spontaneous
  Country: US (occurrence: US)
  Receive Date: 20130918
  Receipt Date: 20131025
  Transmission Date: 20140711
  Serious: Yes (Life-Threatening, Other)
  Sender: FDA-Public Use
  Company Number: US-JNJFOC-20130905898

PATIENT
  Age: 47 Year
  Sex: Female
  Weight: 117.03 kg

DRUGS (31)
  1. REMICADE [Suspect]
     Indication: PSORIATIC ARTHROPATHY
     Dosage: 5TH INFUSION
     Route: 042
     Dates: start: 20130909, end: 20130909
  2. REMICADE [Suspect]
     Indication: PSORIATIC ARTHROPATHY
     Dosage: 5 MG/KG (600 MG), 586 MG, 6 VIALS USED
     Route: 042
     Dates: start: 20130306
  3. REMICADE [Suspect]
     Indication: PSORIATIC ARTHROPATHY
     Dosage: 2ND INFUSION
     Route: 042
     Dates: start: 20130320
  4. REMICADE [Suspect]
     Indication: PSORIATIC ARTHROPATHY
     Dosage: 3RD INFUSION
     Route: 042
     Dates: start: 20130429
  5. REMICADE [Suspect]
     Indication: PSORIATIC ARTHROPATHY
     Dosage: 4TH INFUSION
     Route: 042
     Dates: start: 20130610
  6. TYLENOL [Concomitant]
     Indication: PREMEDICATION
     Dosage: PRIOR TO ALL INFUSIONS
     Route: 048
  7. BENAZEPRIL [Concomitant]
     Indication: HYPERTENSION
     Dosage: 20 (UNITS UNSPECIFIED)
     Route: 065
     Dates: start: 20120507
  8. AMLODIPINE [Concomitant]
     Indication: HYPERTENSION
     Dosage: 5 (UNITS UNSPECIFIED)
     Route: 065
     Dates: start: 20120507
  9. ACETAMINOPHEN [Concomitant]
     Indication: PREMEDICATION
     Route: 065
  10. SOLU MEDROL [Concomitant]
     Indication: PREMEDICATION
     Route: 042
  11. DIPHENHYDRAMINE [Concomitant]
     Indication: PREMEDICATION
     Route: 048
  12. NORVASC [Concomitant]
  13. SPRINTEC [Concomitant]
     Indication: ORAL CONTRACEPTION
     Route: 048
  14. PREDNISONE [Concomitant]
     Indication: INFLAMMATION
     Route: 065
     Dates: start: 20130917
  15. PREDNISONE [Concomitant]
     Indication: INFLAMMATION
     Route: 065
     Dates: start: 20130211, end: 20130419
  16. TRAMADOL [Concomitant]
     Indication: PAIN
     Dosage: AS NECESSARY
     Route: 065
     Dates: start: 20130917
  17. METHOTREXATE [Concomitant]
     Indication: PSORIATIC ARTHROPATHY
     Dosage: 5 TABLETS
     Route: 048
     Dates: start: 20130917
  18. METHOTREXATE [Concomitant]
     Indication: PSORIATIC ARTHROPATHY
     Dosage: 6 TABLETS
     Route: 048
     Dates: start: 20130419, end: 20130917
  19. METHOTREXATE [Concomitant]
     Indication: PSORIASIS
     Dosage: 5 TABLETS
     Route: 048
     Dates: start: 20130917
  20. METHOTREXATE [Concomitant]
     Indication: PSORIASIS
     Dosage: 6 TABLETS
     Route: 048
     Dates: start: 20130419, end: 20130917
  21. FISH OIL [Concomitant]
     Route: 048
  22. FOLIC ACID [Concomitant]
     Indication: NAUSEA
     Route: 065
     Dates: start: 20120125
  23. FLEXERIL [Concomitant]
     Indication: BACK PAIN
     Dosage: AS NECESSARY, HS
     Route: 065
     Dates: start: 20120717
  24. ZYRTEC [Concomitant]
     Indication: RHINITIS ALLERGIC
     Dosage: AS NECESSARY
     Route: 065
     Dates: start: 20130123
  25. SPRINTEC [Concomitant]
     Indication: HORMONE REPLACEMENT THERAPY
     Dosage: 25/35 (UNITS UNSPECIFIED)
     Route: 065
     Dates: start: 20120123
  26. HUMIRA [Concomitant]
     Indication: PSORIATIC ARTHROPATHY
     Route: 065
     Dates: start: 20120123, end: 20130211
  27. BENADRYL [Concomitant]
     Indication: PREMEDICATION
     Route: 048
     Dates: start: 20130320
  28. BENADRYL [Concomitant]
     Indication: PREMEDICATION
     Route: 048
     Dates: start: 20130306
  29. SOLU MEDROL [Concomitant]
     Route: 042
     Dates: start: 20130909
  30. SOLU MEDROL [Concomitant]
     Route: 042
     Dates: start: 20130421
  31. SOLU MEDROL [Concomitant]
     Route: 042
     Dates: start: 20130610

REACTIONS (5)
  - Anaphylactoid reaction [Recovered/Resolved]
  - Herpes zoster [Recovered/Resolved]
  - Infusion related reaction [Recovered/Resolved]
  - Respiratory disorder [Unknown]
  - Sinus disorder [Unknown]
